FAERS Safety Report 17693705 (Version 4)
Quarter: 2021Q3

REPORT INFORMATION
  Report Type: Spontaneous
  Country: CA (occurrence: CA)
  Receive Date: 20200422
  Receipt Date: 20210702
  Transmission Date: 20211014
  Serious: Yes (Other)
  Sender: FDA-Public Use
  Company Number: CA-PFIZER INC-2020158324

PATIENT
  Age: 55 Year
  Sex: Female

DRUGS (4)
  1. PREDNISONE. [Concomitant]
     Active Substance: PREDNISONE
     Dosage: UNK
  2. XELJANZ XR [Concomitant]
     Active Substance: TOFACITINIB CITRATE
     Indication: RHEUMATOID ARTHRITIS
     Dosage: 11 MG, 1X/DAY
     Route: 048
     Dates: start: 20200630
  3. METHOTREXATE SODIUM. [Suspect]
     Active Substance: METHOTREXATE SODIUM
     Indication: RHEUMATOID ARTHRITIS
     Dosage: 25 MG, WEEKLY FOR OVER 4 MONTHS
     Route: 058
  4. PLAQUENIL [Concomitant]
     Active Substance: HYDROXYCHLOROQUINE SULFATE
     Dosage: 200 MG, 1X/DAY FOR OVER 5 MONTHS
     Route: 065

REACTIONS (13)
  - Off label use [Unknown]
  - Drug ineffective [Unknown]
  - Night sweats [Unknown]
  - Muscle spasms [Unknown]
  - Rash macular [Unknown]
  - Arthralgia [Unknown]
  - Blood thyroid stimulating hormone increased [Unknown]
  - Liver injury [Unknown]
  - Product use issue [Unknown]
  - Arthropathy [Unknown]
  - Alanine aminotransferase increased [Unknown]
  - Joint injury [Unknown]
  - Pain [Unknown]

NARRATIVE: CASE EVENT DATE: 20200427
